FAERS Safety Report 13712661 (Version 9)
Quarter: 2018Q1

REPORT INFORMATION
  Report Type: Spontaneous
  Country: JP (occurrence: JP)
  Receive Date: 20170703
  Receipt Date: 20180326
  Transmission Date: 20180508
  Serious: Yes (Death, Life-Threatening, Other)
  Sender: FDA-Public Use
  Company Number: JP-BRISTOL-MYERS SQUIBB COMPANY-BMS-2017-047232

PATIENT
  Age: 38 Year
  Sex: Female

DRUGS (17)
  1. BILANOA [Concomitant]
     Active Substance: BILASTINE
     Indication: SEASONAL ALLERGY
     Dosage: 20 MG, QD
     Route: 048
     Dates: start: 20170301
  2. KENKETU GLOVENIN-I [Concomitant]
     Active Substance: HUMAN IMMUNOGLOBULIN G
     Indication: PRODUCT USED FOR UNKNOWN INDICATION
     Dosage: 5000 MG, SINGLE
     Route: 065
     Dates: start: 20170525, end: 20170529
  3. HACHIAZULE                         /00317302/ [Concomitant]
     Indication: STOMATITIS
     Dosage: UNK
     Route: 065
     Dates: start: 20170527
  4. YERVOY [Suspect]
     Active Substance: IPILIMUMAB
     Indication: MALIGNANT MELANOMA
     Dosage: 3 MG/KG, QD
     Route: 041
     Dates: start: 20170426, end: 20170517
  5. PREDNISOLONE. [Concomitant]
     Active Substance: PREDNISOLONE
     Indication: PRODUCT USED FOR UNKNOWN INDICATION
     Dosage: 80 MG, SINGLE
     Route: 065
     Dates: start: 20170603, end: 20170605
  6. PREDNISOLONE. [Concomitant]
     Active Substance: PREDNISOLONE
     Indication: PRODUCT USED FOR UNKNOWN INDICATION
     Dosage: 65 MG, SINGLE
     Route: 065
     Dates: start: 20170606, end: 20170609
  7. PREDNISOLONE. [Concomitant]
     Active Substance: PREDNISOLONE
     Indication: PRODUCT USED FOR UNKNOWN INDICATION
     Dosage: 50 MG, SINGLE
     Route: 065
     Dates: start: 20170610, end: 20170614
  8. BAKTAR [Concomitant]
     Active Substance: SULFAMETHOXAZOLE\TRIMETHOPRIM
     Indication: PROPHYLAXIS
     Dosage: 2 DF, 2 TIMES/WK
     Route: 048
     Dates: start: 20170531
  9. DEXART [Concomitant]
     Active Substance: DEXAMETHASONE SODIUM PHOSPHATE
     Indication: PRODUCT USED FOR UNKNOWN INDICATION
     Dosage: 9.9 MG, SINGLE
     Route: 065
     Dates: start: 20170524, end: 20170525
  10. LUNESTA [Concomitant]
     Active Substance: ESZOPICLONE
     Indication: INSOMNIA
     Dosage: 1 MG, SINGLE
     Route: 048
     Dates: start: 20170527
  11. OPDIVO [Suspect]
     Active Substance: NIVOLUMAB
     Indication: MALIGNANT MELANOMA
     Dosage: 3 MG/KG, Q2WK
     Route: 041
     Dates: start: 20161214, end: 20170405
  12. PL [Concomitant]
     Active Substance: ACETAMINOPHEN\CAFFEINE\PROMETHAZINE\SALICYLAMIDE
     Indication: PHARYNGITIS
     Dosage: 1 G, QID
     Route: 048
     Dates: start: 20170517, end: 20170524
  13. RANMARK [Concomitant]
     Active Substance: DENOSUMAB
     Indication: MALIGNANT MELANOMA
     Dosage: 120 MG, Q4WK
     Route: 058
     Dates: start: 20170510
  14. AUGMENTIN [Concomitant]
     Active Substance: AMOXICILLIN\CLAVULANATE POTASSIUM
     Indication: PHARYNGITIS
     Dosage: 1 DF, QID
     Route: 048
     Dates: start: 20170517
  15. DENOTAS [Concomitant]
     Active Substance: CALCIUM CARBONATE\CHOLECALCIFEROL\MAGNESIUM CARBONATE
     Indication: PROPHYLAXIS
     Dosage: 2 DF, QD
     Route: 048
     Dates: start: 20170517
  16. PREDNISOLONE. [Concomitant]
     Active Substance: PREDNISOLONE
     Indication: PRODUCT USED FOR UNKNOWN INDICATION
     Dosage: 95 MG, SINGLE
     Route: 065
     Dates: start: 20170526, end: 20170602
  17. FLORID                             /00310802/ [Concomitant]
     Indication: ORAL CANDIDIASIS
     Dosage: UNK
     Route: 061
     Dates: start: 20170530

REACTIONS (11)
  - Malignant neoplasm progression [Fatal]
  - Rash [Recovered/Resolved]
  - Hypothyroidism [Not Recovered/Not Resolved]
  - Liver disorder [Recovering/Resolving]
  - C-reactive protein increased [Not Recovered/Not Resolved]
  - Enterocolitis [Recovering/Resolving]
  - Lymphadenopathy [Unknown]
  - Histiocytosis haematophagic [Recovering/Resolving]
  - Disseminated intravascular coagulation [Recovering/Resolving]
  - Pyrexia [Recovering/Resolving]
  - Hepatosplenomegaly [Unknown]

NARRATIVE: CASE EVENT DATE: 20170522
